FAERS Safety Report 14854058 (Version 1)
Quarter: 2018Q2

REPORT INFORMATION
  Report Type: Spontaneous
  Country: DE (occurrence: DE)
  Receive Date: 20180507
  Receipt Date: 20180507
  Transmission Date: 20180711
  Serious: Yes (Other)
  Sender: FDA-Public Use
  Company Number: DE-PFIZER INC-2018178715

PATIENT
  Sex: Male

DRUGS (1)
  1. VFEND [Suspect]
     Active Substance: VORICONAZOLE

REACTIONS (4)
  - Diplopia [Recovered/Resolved]
  - Disease recurrence [Recovered/Resolved]
  - VIth nerve paralysis [Unknown]
  - Disease recurrence [Unknown]
